FAERS Safety Report 16156911 (Version 1)
Quarter: 2019Q2

REPORT INFORMATION
  Report Type: Spontaneous
  Country: SI (occurrence: SI)
  Receive Date: 20190404
  Receipt Date: 20190404
  Transmission Date: 20190711
  Serious: Yes (Death, Life-Threatening, Hospitalization, Disabling, Other)
  Sender: FDA-Public Use
  Company Number: SI-LUPIN PHARMACEUTICALS INC.-2019-02029

PATIENT
  Age: 30 Year
  Sex: Female

DRUGS (4)
  1. DULOXETINE. [Suspect]
     Active Substance: DULOXETINE
     Dosage: UNK, LARGE DOSE
     Route: 065
  2. VENLAFAXINE [Suspect]
     Active Substance: VENLAFAXINE HYDROCHLORIDE
     Dosage: UNK, NORMAL DOSE
     Route: 065
  3. DULOXETINE. [Suspect]
     Active Substance: DULOXETINE
     Indication: DEPRESSION
     Dosage: UNK, NORMAL DOSE
     Route: 065
  4. VENLAFAXINE [Suspect]
     Active Substance: VENLAFAXINE HYDROCHLORIDE
     Indication: DEPRESSION
     Dosage: UNK, LARGE DOSE
     Route: 065

REACTIONS (16)
  - Cardiac failure [Not Recovered/Not Resolved]
  - Vomiting [Unknown]
  - Hypotension [Not Recovered/Not Resolved]
  - Sinus tachycardia [Unknown]
  - Completed suicide [Fatal]
  - Respiratory alkalosis [Unknown]
  - Arrhythmia [Not Recovered/Not Resolved]
  - Electrocardiogram QRS complex abnormal [Unknown]
  - Generalised tonic-clonic seizure [Recovered/Resolved]
  - Toxicity to various agents [Fatal]
  - Intentional overdose [Fatal]
  - Tachypnoea [Unknown]
  - Coma [Unknown]
  - Bradycardia [Unknown]
  - Serotonin syndrome [Fatal]
  - Metabolic acidosis [Unknown]
